FAERS Safety Report 8550273-9 (Version None)
Quarter: 2012Q3

REPORT INFORMATION
  Report Type: 
  Country: None (occurrence: None)
  Receive Date: 20120730
  Receipt Date: 20120724
  Transmission Date: 20120928
  Serious: Yes (Other)
  Sender: FDA-Public Use
  Company Number: PHHY2012GB063857

PATIENT
  Age: 50 Year
  Sex: Female

DRUGS (6)
  1. PAROXETINE HCL [Suspect]
     Dosage: 10 MG, UNK
     Route: 048
     Dates: end: 20060901
  2. ZOPICLONE [Concomitant]
  3. HEROIN [Concomitant]
     Dates: start: 20050101, end: 20050101
  4. TRAMADOL HYDROCHLORIDE [Suspect]
  5. PAROXETINE HCL [Suspect]
     Indication: DEPRESSION
     Dosage: 20 MG, UNK
     Route: 048
     Dates: start: 20010601
  6. RISPERIDONE [Concomitant]

REACTIONS (17)
  - FEELING ABNORMAL [None]
  - INAPPROPRIATE AFFECT [None]
  - DEPRESSION [None]
  - ABNORMAL BEHAVIOUR [None]
  - DRUG DEPENDENCE [None]
  - MANIA [None]
  - TENSION [None]
  - PREMATURE MENOPAUSE [None]
  - NERVOUS SYSTEM DISORDER [None]
  - INTENTIONAL OVERDOSE [None]
  - BRAIN INJURY [None]
  - PSYCHOMOTOR HYPERACTIVITY [None]
  - JUDGEMENT IMPAIRED [None]
  - MOOD ALTERED [None]
  - ANGER [None]
  - MENTAL IMPAIRMENT [None]
  - DRUG ABUSE [None]
